FAERS Safety Report 5050012-2 (Version None)
Quarter: 2006Q3

REPORT INFORMATION
  Report Type: 
  Country: None (occurrence: None)
  Receive Date: 20060713
  Receipt Date: 20060628
  Transmission Date: 20061208
  Serious: Yes (Life-Threatening)
  Sender: FDA-Public Use
  Company Number: 2006PK01406

PATIENT
  Age: 22773 Day
  Sex: Female

DRUGS (8)
  1. IRESSA [Suspect]
     Indication: SQUAMOUS CELL CARCINOMA
     Route: 048
     Dates: start: 20050705, end: 20060623
  2. RADIOTHERAPY [Suspect]
     Indication: SQUAMOUS CELL CARCINOMA
     Dates: end: 20060623
  3. CISPLATIN [Suspect]
     Indication: SQUAMOUS CELL CARCINOMA
     Route: 042
     Dates: end: 20060623
  4. ESIDRIX [Concomitant]
     Indication: OEDEMA
  5. PANTOZOL [Concomitant]
     Indication: GASTRIC ULCER
  6. TAVEGIL [Concomitant]
     Indication: RASH PRURITIC
  7. MG VERLA [Concomitant]
     Indication: HYPOMAGNESAEMIA
  8. L-THYROXIN [Concomitant]
     Indication: HYPOTHYROIDISM

REACTIONS (2)
  - INTESTINAL ISCHAEMIA [None]
  - MALIGNANT NEOPLASM PROGRESSION [None]
